FAERS Safety Report 25271785 (Version 1)
Quarter: 2025Q2

REPORT INFORMATION
  Report Type: Spontaneous
  Country: CN (occurrence: CN)
  Receive Date: 20250506
  Receipt Date: 20250506
  Transmission Date: 20250716
  Serious: Yes (Hospitalization)
  Sender: JOHNSON AND JOHNSON
  Company Number: CN-JNJFOC-20250439228

PATIENT
  Age: 79 Year
  Sex: Female
  Weight: 54 kg

DRUGS (2)
  1. DARZALEX [Suspect]
     Active Substance: DARATUMUMAB
     Indication: Plasma cell myeloma
     Route: 041
     Dates: start: 20250424, end: 20250425
  2. SODIUM CHLORIDE [Concomitant]
     Active Substance: SODIUM CHLORIDE
     Indication: Vehicle solution use
     Route: 041
     Dates: start: 20250424, end: 20250425

REACTIONS (7)
  - Flushing [Recovering/Resolving]
  - Asphyxia [Recovering/Resolving]
  - Rhinorrhoea [Recovering/Resolving]
  - Nasal obstruction [Recovering/Resolving]
  - Chest discomfort [Recovering/Resolving]
  - Hypertension [Recovering/Resolving]
  - Infusion related reaction [Recovering/Resolving]

NARRATIVE: CASE EVENT DATE: 20250424
